FAERS Safety Report 12917568 (Version 5)
Quarter: 2017Q1

REPORT INFORMATION
  Report Type: Spontaneous
  Country: US (occurrence: US)
  Receive Date: 20161107
  Receipt Date: 20170310
  Transmission Date: 20170428
  Serious: Yes (Hospitalization, Congenital Anomaly, Other)
  Sender: FDA-Public Use
  Company Number: PHEH2016US028874

PATIENT
  Sex: Female

DRUGS (1)
  1. ONDANSETRON [Suspect]
     Active Substance: ONDANSETRON
     Indication: FOETAL EXPOSURE DURING PREGNANCY
     Dosage: MOTHER^S DOSE: 8 MG, UNK
     Route: 064

REACTIONS (14)
  - Tachycardia foetal [Unknown]
  - Foetal exposure during pregnancy [Unknown]
  - Fever neonatal [Unknown]
  - Premature baby [Unknown]
  - Metabolic acidosis [Unknown]
  - Otitis media [Unknown]
  - Congenital vesicoureteric reflux [Unknown]
  - Single umbilical artery [Unknown]
  - Developmental delay [Unknown]
  - Upper respiratory tract infection [Unknown]
  - Renal fusion anomaly [Unknown]
  - Cleft palate [Unknown]
  - Dehydration [Unknown]
  - Pneumonia aspiration [Unknown]
